FAERS Safety Report 13607990 (Version 1)
Quarter: 2017Q2

REPORT INFORMATION
  Report Type: Spontaneous
  Country: FR (occurrence: FR)
  Receive Date: 20170602
  Receipt Date: 20170602
  Transmission Date: 20170830
  Serious: Yes (Life-Threatening, Other)
  Sender: FDA-Public Use
  Company Number: FR-PFIZER INC-HQWYE403629SEP06

PATIENT
  Age: 16 Year
  Sex: Female
  Weight: 50 kg

DRUGS (10)
  1. IFOSFAMIDE. [Concomitant]
     Active Substance: IFOSFAMIDE
     Indication: OSTEOSARCOMA
     Dosage: ALTERNATING COURSES WITH METHOTREXATE
  2. METHOTREXATE SODIUM. [Suspect]
     Active Substance: METHOTREXATE SODIUM
     Indication: OSTEOSARCOMA
     Dosage: 18 G, CYCLIC
     Route: 042
     Dates: start: 200410
  3. METHOTREXATE SODIUM. [Interacting]
     Active Substance: METHOTREXATE SODIUM
     Indication: BONE SARCOMA
     Dosage: 50 MG/M2, CYCLIC
     Route: 042
  4. ETOPOSIDE. [Concomitant]
     Active Substance: ETOPOSIDE
     Indication: OSTEOSARCOMA
     Dosage: ALTERNATING COURSES WITH METHOTREXATE
  5. ONDANSETRON [Concomitant]
     Active Substance: ONDANSETRON
     Indication: PROPHYLAXIS OF NAUSEA AND VOMITING
     Dosage: UNK
  6. METHOTREXATE SODIUM. [Interacting]
     Active Substance: METHOTREXATE SODIUM
     Dosage: 12 G, CYCLIC
     Route: 042
  7. METHOTREXATE SODIUM. [Interacting]
     Active Substance: METHOTREXATE SODIUM
     Dosage: 10 G, CYCLIC
     Route: 042
  8. DANTROLENE [Interacting]
     Active Substance: DANTROLENE
     Indication: ANALGESIC THERAPY
     Dosage: UNK
     Route: 048
  9. METHYLPREDNISOLONE. [Concomitant]
     Active Substance: METHYLPREDNISOLONE
     Indication: PROPHYLAXIS OF NAUSEA AND VOMITING
     Dosage: UNK
  10. NALBUPHINE [Concomitant]
     Active Substance: NALBUPHINE
     Indication: ANALGESIC THERAPY
     Dosage: UNK
     Route: 042

REACTIONS (14)
  - Toxicity to various agents [Recovered/Resolved]
  - Drug interaction [Recovered/Resolved]
  - Oedema [Recovered/Resolved]
  - Neutropenia [Recovered/Resolved]
  - Mucosal inflammation [Recovered/Resolved]
  - Nephropathy [Recovered/Resolved]
  - Anaemia [Recovered/Resolved]
  - Visual impairment [Recovered/Resolved]
  - Thrombocytopenia [Recovered/Resolved]
  - Renal failure [Recovered/Resolved]
  - Hepatitis [Recovered/Resolved]
  - Seizure [Recovered/Resolved]
  - Headache [Recovered/Resolved]
  - Hypertension [Recovered/Resolved]
